FAERS Safety Report 4872468-8 (Version None)
Quarter: 2006Q1

REPORT INFORMATION
  Report Type: 
  Country: None (occurrence: None)
  Receive Date: 20060104
  Receipt Date: 20051222
  Transmission Date: 20060701
  Serious: Yes (Disabling, Other)
  Sender: FDA-Public Use
  Company Number: GB-MERCK-0512GBR00129

PATIENT
  Age: 23 Year
  Sex: Female
  Weight: 74 kg

DRUGS (4)
  1. INDOCIN [Suspect]
     Indication: PREMATURE LABOUR
     Route: 054
     Dates: start: 20051119, end: 20051119
  2. ALBUTEROL [Concomitant]
     Indication: ASTHMA
     Route: 055
  3. RANITIDINE [Concomitant]
     Indication: DYSPEPSIA
     Route: 048
     Dates: start: 20051119, end: 20051119
  4. BETAMETHASONE [Concomitant]
     Indication: PREMATURE LABOUR
     Route: 030
     Dates: start: 20051118, end: 20051119

REACTIONS (7)
  - DIZZINESS [None]
  - DRUG EXPOSURE DURING PREGNANCY [None]
  - DYSARTHRIA [None]
  - DYSKINESIA [None]
  - DYSTONIA [None]
  - HOT FLUSH [None]
  - MUSCLE RIGIDITY [None]
